FAERS Safety Report 14067323 (Version 2)
Quarter: 2017Q4

REPORT INFORMATION
  Report Type: Report from Study
  Country: MX (occurrence: MX)
  Receive Date: 20171009
  Receipt Date: 20171102
  Transmission Date: 20180321
  Serious: Yes (Other)
  Sender: FDA-Public Use
  Company Number: PHHY2017MX148110

PATIENT
  Age: 79 Year
  Sex: Male

DRUGS (4)
  1. ASPIRIN. [Concomitant]
     Active Substance: ASPIRIN
     Indication: PRODUCT USED FOR UNKNOWN INDICATION
     Route: 065
  2. PROPANOLOL [Concomitant]
     Active Substance: PROPRANOLOL HYDROCHLORIDE
     Indication: PRODUCT USED FOR UNKNOWN INDICATION
     Dosage: 1 DF, QD
     Route: 065
  3. EXELON PATCH [Suspect]
     Active Substance: RIVASTIGMINE
     Indication: EMBOLISM
     Dosage: 9.5 MG (PATCH 10 CM2), QD
     Route: 062
     Dates: start: 201703
  4. EXELON PATCH [Suspect]
     Active Substance: RIVASTIGMINE
     Indication: AMNESIA
     Dosage: 9.5 MG (PATCH 10 CM2), Q12H
     Route: 062

REACTIONS (6)
  - Application site irritation [Not Recovered/Not Resolved]
  - Application site haemorrhage [Not Recovered/Not Resolved]
  - Condition aggravated [Unknown]
  - Inappropriate schedule of drug administration [Not Recovered/Not Resolved]
  - Embolism [Unknown]
  - Product use in unapproved indication [Not Recovered/Not Resolved]

NARRATIVE: CASE EVENT DATE: 201703
